FAERS Safety Report 10466084 (Version 1)
Quarter: 2014Q3

REPORT INFORMATION
  Report Type: Report from Study
  Country: US (occurrence: US)
  Receive Date: 20140922
  Receipt Date: 20140922
  Transmission Date: 20150326
  Serious: Yes (Other)
  Sender: FDA-Public Use
  Company Number: US-ROCHE-1463597

PATIENT
  Sex: Male
  Weight: 38.1 kg

DRUGS (6)
  1. ZYRTEC [Concomitant]
     Active Substance: CETIRIZINE HYDROCHLORIDE
  2. NUTROPIN AQ [Suspect]
     Active Substance: SOMATROPIN
     Indication: GROWTH HORMONE DEFICIENCY
     Dosage: 0.3XKG/7 DAYS
     Route: 058
     Dates: start: 201104
  3. NUTROPIN AQ [Suspect]
     Active Substance: SOMATROPIN
     Route: 058
     Dates: start: 201006
  4. SINGULAIR [Concomitant]
     Active Substance: MONTELUKAST SODIUM
     Dosage: 1 AT NIGHT
     Route: 065
  5. ALLEGRA [Concomitant]
     Active Substance: FEXOFENADINE HYDROCHLORIDE
  6. NASONEX [Concomitant]
     Active Substance: MOMETASONE FUROATE

REACTIONS (9)
  - Temperature intolerance [Unknown]
  - Attention deficit/hyperactivity disorder [Unknown]
  - Disturbance in attention [Unknown]
  - Tooth development disorder [Unknown]
  - Rash generalised [Unknown]
  - Melanocytic naevus [Unknown]
  - Acne [Unknown]
  - Increased tendency to bruise [Unknown]
  - Weight decreased [Unknown]
